FAERS Safety Report 14975856 (Version 1)
Quarter: 2018Q2

REPORT INFORMATION
  Report Type: Spontaneous
  Country: US (occurrence: US)
  Receive Date: 20180605
  Receipt Date: 20180605
  Transmission Date: 20180711
  Serious: No
  Sender: FDA-Public Use
  Company Number: US-ROCHE-2006821

PATIENT
  Sex: Female

DRUGS (24)
  1. SYNTHROID [Concomitant]
     Active Substance: LEVOTHYROXINE SODIUM
     Route: 065
  2. CYANOCOBALAMIN. [Concomitant]
     Active Substance: CYANOCOBALAMIN
     Route: 065
  3. ACTEMRA [Suspect]
     Active Substance: TOCILIZUMAB
     Indication: RHEUMATOID ARTHRITIS
     Route: 058
  4. LORATADINE. [Concomitant]
     Active Substance: LORATADINE
     Route: 048
  5. FAMOTIDINE. [Concomitant]
     Active Substance: FAMOTIDINE
     Route: 048
  6. FOLIC ACID. [Concomitant]
     Active Substance: FOLIC ACID
     Dosage: EVERY DAY FOR 90 DAYS
     Route: 048
  7. LASIX [Concomitant]
     Active Substance: FUROSEMIDE
     Route: 065
  8. SERTRALINE HYDROCHLORIDE. [Concomitant]
     Active Substance: SERTRALINE HYDROCHLORIDE
     Route: 065
  9. XELJANZ [Concomitant]
     Active Substance: TOFACITINIB CITRATE
     Dosage: EXTENDED RELEASE 24 HOUR TABLET
     Route: 048
  10. METOPROLOL TARTRATE. [Concomitant]
     Active Substance: METOPROLOL TARTRATE
     Route: 065
  11. FISH OIL [Concomitant]
     Active Substance: FISH OIL
     Route: 048
  12. TURMERIC [Concomitant]
     Active Substance: HERBALS\TURMERIC
     Route: 048
  13. PENNSAID [Concomitant]
     Active Substance: DICLOFENAC SODIUM
     Route: 065
  14. TRAMADOL HYDROCHLORIDE. [Concomitant]
     Active Substance: TRAMADOL HYDROCHLORIDE
     Route: 065
  15. ACTEMRA [Suspect]
     Active Substance: TOCILIZUMAB
     Indication: RHEUMATOID ARTHRITIS
     Route: 042
  16. OTEZLA [Concomitant]
     Active Substance: APREMILAST
     Route: 065
  17. SINGULAIR [Concomitant]
     Active Substance: MONTELUKAST SODIUM
     Dosage: IN THE EVENING
     Route: 065
  18. CYCLOBENZAPRINE HCL [Concomitant]
     Active Substance: CYCLOBENZAPRINE HYDROCHLORIDE
     Route: 048
  19. ERGOCALCIFEROL. [Concomitant]
     Active Substance: ERGOCALCIFEROL
     Dosage: 50000 UNIT 1 CAPSULE
     Route: 065
  20. QUESTRAN [Concomitant]
     Active Substance: CHOLESTYRAMINE
     Route: 065
  21. ALBUTEROL SULFATE. [Concomitant]
     Active Substance: ALBUTEROL SULFATE
     Dosage: 2 PUFFS AS NEEDED EVERY 6 HOURS
     Route: 065
  22. TRIAMTERENE. [Concomitant]
     Active Substance: TRIAMTERENE
     Dosage: 37.5-25 MG IN THE MORNING
     Route: 065
  23. KLOR-CON [Concomitant]
     Active Substance: POTASSIUM CHLORIDE
     Dosage: EXTENDED RELEASE
     Route: 065
  24. FIBER [Concomitant]
     Active Substance: PSYLLIUM HUSK
     Route: 065

REACTIONS (40)
  - Dyspnoea [Unknown]
  - Dyspnoea exertional [Unknown]
  - Abdominal pain [Unknown]
  - Dyspepsia [Unknown]
  - Tooth disorder [Unknown]
  - Musculoskeletal chest pain [Unknown]
  - Hypoaesthesia [Unknown]
  - Night sweats [Unknown]
  - Insomnia [Unknown]
  - Paranasal sinus hypersecretion [Unknown]
  - Hot flush [Unknown]
  - Paraesthesia [Unknown]
  - Dry mouth [Unknown]
  - Costochondritis [Unknown]
  - Blood albumin decreased [Unknown]
  - Anxiety [Unknown]
  - Torticollis [Unknown]
  - Spinal pain [Unknown]
  - Fatigue [Unknown]
  - Diffuse idiopathic skeletal hyperostosis [Unknown]
  - Pruritus [Unknown]
  - Joint effusion [Unknown]
  - Dry eye [Unknown]
  - Visual impairment [Unknown]
  - Headache [Unknown]
  - Abdominal distension [Unknown]
  - Sciatica [Unknown]
  - Depression [Unknown]
  - Vitamin D deficiency [Unknown]
  - Nephrolithiasis [Unknown]
  - Rash [Unknown]
  - Fall [Unknown]
  - Acquired diaphragmatic eventration [Unknown]
  - Muscle spasms [Unknown]
  - Mouth ulceration [Unknown]
  - Diarrhoea [Unknown]
  - Asthenia [Unknown]
  - Temperature intolerance [Unknown]
  - Oedema [Unknown]
  - Balance disorder [Unknown]
